FAERS Safety Report 20329380 (Version 4)
Quarter: 2022Q1

REPORT INFORMATION
  Report Type: Spontaneous
  Country: KR (occurrence: KR)
  Receive Date: 20220112
  Receipt Date: 20220307
  Transmission Date: 20220423
  Serious: Yes (Hospitalization)
  Sender: FDA-Public Use
  Company Number: US-CELGENE-KOR-20220102337

PATIENT
  Age: 81 Year
  Sex: Male
  Weight: 60 kg

DRUGS (17)
  1. AZACITIDINE [Suspect]
     Active Substance: AZACITIDINE
     Indication: Myelodysplastic syndrome
     Dosage: 75 MILLIGRAM/KILOGRAM
     Route: 058
     Dates: start: 20210816, end: 20211228
  2. VENETOCLAX [Suspect]
     Active Substance: VENETOCLAX
     Indication: Product used for unknown indication
     Route: 065
  3. PYRIDOXINE [Concomitant]
     Active Substance: PYRIDOXINE
     Indication: Prophylaxis
     Dosage: 50 MILLIGRAM
     Route: 048
     Dates: start: 20210527
  4. Zoylex [Concomitant]
     Indication: Infection prophylaxis
     Dosage: 1600 MILLIGRAM
     Route: 048
     Dates: start: 20210805
  5. SIWONAL [Concomitant]
     Indication: Benign prostatic hyperplasia
     Dosage: .2 MILLIGRAM
     Route: 048
     Dates: start: 20200827
  6. FINADRON [Concomitant]
     Indication: Benign prostatic hyperplasia
     Dosage: 5 MILLIGRAM
     Route: 048
     Dates: start: 20201214
  7. KYTRIL [Concomitant]
     Active Substance: GRANISETRON HYDROCHLORIDE
     Indication: Prophylaxis of nausea and vomiting
     Dosage: 1 MILLIGRAM
     Route: 048
     Dates: start: 20210816, end: 20210824
  8. KYTRIL [Concomitant]
     Active Substance: GRANISETRON HYDROCHLORIDE
     Dosage: 1 MILLIGRAM
     Route: 048
     Dates: start: 20211011
  9. MAGNESIUM OXIDE [Concomitant]
     Active Substance: MAGNESIUM OXIDE
     Indication: Prophylaxis
     Dosage: 500 MILLIGRAM
     Route: 048
     Dates: start: 20210915
  10. CALCIUM POLYCARBOPHIL [Concomitant]
     Active Substance: CALCIUM POLYCARBOPHIL
     Indication: Prophylaxis
     Dosage: 625 MILLIGRAM
     Route: 048
     Dates: start: 20210915
  11. TANTUM [Concomitant]
     Active Substance: BENZYDAMINE HYDROCHLORIDE
     Indication: Stomatitis
     Dosage: 15 MILLILITER
     Route: 048
     Dates: start: 20210901
  12. MEGESTROL [Concomitant]
     Active Substance: MEGESTROL
     Indication: Prophylaxis
     Dosage: 5.2 MILLILITER
     Route: 048
     Dates: start: 20211013
  13. Levoplus [Concomitant]
     Indication: Infection prophylaxis
     Dosage: 750 MILLIGRAM
     Route: 048
     Dates: start: 20211027
  14. SULFAMETHOXAZOLE\TRIMETHOPRIM [Concomitant]
     Active Substance: SULFAMETHOXAZOLE\TRIMETHOPRIM
     Indication: Infection prophylaxis
     Dosage: 960 MILLIGRAM
     Route: 048
     Dates: start: 20211104
  15. SILCON [Concomitant]
     Indication: Constipation prophylaxis
     Dosage: 1875 MILLIGRAM
     Route: 048
     Dates: start: 20211126
  16. HERBALS [Concomitant]
     Active Substance: HERBALS
     Indication: Prophylaxis
     Dosage: 90 MILLIGRAM
     Route: 048
     Dates: start: 20211203
  17. HERBALS [Concomitant]
     Active Substance: HERBALS
     Indication: Dyspepsia
     Dosage: 30MILLIGRAM
     Route: 048
     Dates: start: 20211203

REACTIONS (1)
  - Laryngopharyngitis [Recovered/Resolved]

NARRATIVE: CASE EVENT DATE: 20220104
